FAERS Safety Report 6051958-9 (Version None)
Quarter: 2009Q1

REPORT INFORMATION
  Report Type: 
  Country: None (occurrence: None)
  Receive Date: 20090121
  Receipt Date: 20090121
  Transmission Date: 20090719
  Serious: Yes (Other)
  Sender: FDA-Public Use
  Company Number: None

PATIENT
  Sex: Female

DRUGS (1)
  1. DIVALOPROEX [Suspect]
     Dosage: 500MG, 2 PO BID
     Route: 048

REACTIONS (3)
  - HEADACHE [None]
  - NAUSEA [None]
  - PRODUCT QUALITY ISSUE [None]
